FAERS Safety Report 6216992-4 (Version None)
Quarter: 2009Q2

REPORT INFORMATION
  Report Type: 
  Country: None (occurrence: None)
  Receive Date: 20090604
  Receipt Date: 20090526
  Transmission Date: 20091009
  Serious: Yes (Hospitalization)
  Sender: FDA-Public Use
  Company Number: GXKR2009TR06184

PATIENT
  Age: 55 Year
  Sex: Female

DRUGS (1)
  1. CEFOPERAZONE+SULBACTAM (CEFOPERAZONE, SULBACTAM) UNKNOWN [Suspect]
     Indication: PYELONEPHRITIS ACUTE
     Dosage: 2 X 1 G,

REACTIONS (4)
  - CONVULSION [None]
  - LOSS OF CONSCIOUSNESS [None]
  - MUSCLE CONTRACTIONS INVOLUNTARY [None]
  - STATUS EPILEPTICUS [None]
